FAERS Safety Report 18560235 (Version 1)
Quarter: 2020Q4

REPORT INFORMATION
  Report Type: Spontaneous
  Country: US (occurrence: US)
  Receive Date: 20201130
  Receipt Date: 20201130
  Transmission Date: 20210114
  Serious: No
  Sender: FDA-Public Use
  Company Number: US-009507513-2011USA015193

PATIENT
  Sex: Female

DRUGS (1)
  1. NEXPLANON [Suspect]
     Active Substance: ETONOGESTREL
     Indication: CONTRACEPTION
     Dosage: 1 DOSAGE FORM (1 IMPLANT), DOSE REPORTED AS 68 MILLIGRAM, FREQUENCY REPORTED AS DAILY
     Route: 059
     Dates: start: 201912, end: 20200512

REACTIONS (1)
  - Hypersensitivity [Unknown]
